FAERS Safety Report 16548301 (Version 1)
Quarter: 2019Q3

REPORT INFORMATION
  Report Type: Spontaneous
  Country: US (occurrence: US)
  Receive Date: 20190709
  Receipt Date: 20190709
  Transmission Date: 20191004
  Serious: Yes (Other)
  Sender: FDA-Public Use
  Company Number: US-ASTRAZENECA-2019SE79766

PATIENT
  Age: 614 Month
  Sex: Female
  Weight: 92.5 kg

DRUGS (2)
  1. FASLODEX [Suspect]
     Active Substance: FULVESTRANT
     Indication: BREAST CANCER METASTATIC
     Dosage: 500MG MONTHLY AFTER HER FIRST THREE DOSES
     Route: 030
     Dates: start: 20190502
  2. ELIQUIS [Concomitant]
     Active Substance: APIXABAN

REACTIONS (13)
  - Blood pressure abnormal [Unknown]
  - Myalgia [Unknown]
  - Photophobia [Unknown]
  - Dry eye [Unknown]
  - Visual impairment [Unknown]
  - Dizziness [Unknown]
  - Injection site pain [Unknown]
  - Tremor [Not Recovered/Not Resolved]
  - Pleural effusion [Unknown]
  - Mental impairment [Unknown]
  - Pulse abnormal [Unknown]
  - Confusional state [Unknown]
  - Muscle swelling [Unknown]

NARRATIVE: CASE EVENT DATE: 201905
